FAERS Safety Report 6756254-X (Version None)
Quarter: 2010Q2

REPORT INFORMATION
  Report Type: 
  Country: None (occurrence: None)
  Receive Date: 20100604
  Receipt Date: 20100519
  Transmission Date: 20101027
  Serious: Yes (Other)
  Sender: FDA-Public Use
  Company Number: US-PFIZER INC-2010020115

PATIENT
  Sex: Female
  Weight: 81.6 kg

DRUGS (14)
  1. TOVIAZ [Suspect]
     Indication: INCONTINENCE
     Dosage: 8 MG, 1X/DAY
     Route: 048
     Dates: start: 20091104
  2. ADDERALL 10 [Concomitant]
     Indication: ANXIETY
     Dosage: TWO TO THREE 20 MG TABLETS ONCE DAILY
     Route: 048
  3. ADDERALL 10 [Concomitant]
     Indication: DEPRESSION
  4. ALPRAZOLAM [Concomitant]
     Indication: ANXIETY
     Dosage: 0.5 MG NO MORE THAN 3 TIMES A DAY AS NEEDED
  5. ALPRAZOLAM [Concomitant]
     Indication: DEPRESSION
  6. LEVOTHYROXINE [Concomitant]
     Indication: THYROID DISORDER
     Dosage: 100 UG, 1X/DAY
  7. ALEVE (CAPLET) [Concomitant]
     Indication: ARTHRITIS
     Dosage: UNK
  8. COREG [Concomitant]
     Indication: HYPERTENSION
     Dosage: 6.25 MG, UNK
  9. PROZAC [Concomitant]
     Indication: DEPRESSION
     Dosage: 20 MG, 1X/DAY
  10. ZINECARD [Concomitant]
     Dosage: UNK
  11. AMBIEN [Concomitant]
     Dosage: UNK
  12. ACETYLSALICYLIC ACID [Concomitant]
     Dosage: UNK
  13. HYDROCODONE [Concomitant]
     Indication: ARTHRITIS
     Dosage: UNK
  14. BENICAR [Concomitant]
     Indication: HYPERTENSION
     Dosage: UNK

REACTIONS (5)
  - ALOPECIA [None]
  - CONSTIPATION [None]
  - DYSPEPSIA [None]
  - DYSPNOEA [None]
  - OEDEMA [None]
